FAERS Safety Report 10413363 (Version 1)
Quarter: 2014Q3

REPORT INFORMATION
  Report Type: Spontaneous
  Country: US (occurrence: US)
  Receive Date: 20140827
  Receipt Date: 20140827
  Transmission Date: 20150326
  Serious: Yes (Hospitalization)
  Sender: FDA-Public Use
  Company Number: US-GLAXOSMITHKLINE-A1085499A

PATIENT
  Sex: Female

DRUGS (5)
  1. ALBUTEROL NEBULIZER [Concomitant]
     Active Substance: ALBUTEROL
  2. IPRATROPIUM [Concomitant]
     Active Substance: IPRATROPIUM
  3. NOVOLOG [Concomitant]
     Active Substance: INSULIN ASPART
  4. COMBIVENT [Concomitant]
     Active Substance: ALBUTEROL SULFATE\IPRATROPIUM BROMIDE
  5. ADVAIR HFA [Suspect]
     Active Substance: FLUTICASONE PROPIONATE\SALMETEROL XINAFOATE
     Indication: CHRONIC OBSTRUCTIVE PULMONARY DISEASE
     Dosage: 1PUFF TWICE PER DAY
     Dates: start: 2004

REACTIONS (3)
  - Bronchitis [Unknown]
  - Glucose tolerance impaired [Unknown]
  - Pneumonia [Not Recovered/Not Resolved]
